FAERS Safety Report 7411955-5 (Version None)
Quarter: 2011Q2

REPORT INFORMATION
  Report Type: 
  Country: None (occurrence: None)
  Receive Date: 20110408
  Receipt Date: 20110408
  Transmission Date: 20111010
  Serious: Yes (Hospitalization)
  Sender: FDA-Public Use
  Company Number: None

PATIENT
  Sex: Female
  Weight: 66.1 kg

DRUGS (10)
  1. IFOSFAMIDE [Suspect]
     Dosage: 2.72 G
  2. FAMOTIDINE [Concomitant]
  3. NEXIUM [Concomitant]
  4. PERCOCET [Concomitant]
  5. PROCHLORPERAZINE TAB [Concomitant]
  6. PACLITAXEL [Suspect]
     Dosage: 230 MG
  7. PEGFILGRASTIM [Suspect]
     Dosage: 6 MG
  8. SIMVASTATIN [Concomitant]
  9. NORVASC [Concomitant]
  10. ZOFRAN [Concomitant]

REACTIONS (5)
  - BLOOD POTASSIUM DECREASED [None]
  - PAIN [None]
  - PARAESTHESIA [None]
  - HAEMATOCRIT DECREASED [None]
  - HAEMOGLOBIN DECREASED [None]
